FAERS Safety Report 20731972 (Version 1)
Quarter: 2022Q2

REPORT INFORMATION
  Report Type: Report from Study
  Country: TR (occurrence: TR)
  Receive Date: 20220420
  Receipt Date: 20220420
  Transmission Date: 20220720
  Serious: Yes (Other)
  Sender: FDA-Public Use
  Company Number: TR-GLAXOSMITHKLINE-TR2022GSK066676

PATIENT

DRUGS (1)
  1. MEPOLIZUMAB [Suspect]
     Active Substance: MEPOLIZUMAB
     Indication: Asthma
     Dosage: UNK

REACTIONS (5)
  - Cardiac failure [Unknown]
  - Ventricular hypokinesia [Unknown]
  - Oedema peripheral [Unknown]
  - Troponin T increased [Unknown]
  - Prohormone brain natriuretic peptide increased [Unknown]
